FAERS Safety Report 21074135 (Version 2)
Quarter: 2023Q1

REPORT INFORMATION
  Report Type: Report from Study
  Country: CA (occurrence: CA)
  Receive Date: 20220713
  Receipt Date: 20230201
  Transmission Date: 20230417
  Serious: Yes (Death, Hospitalization, Other)
  Sender: FDA-Public Use
  Company Number: CA-JNJFOC-20220301107

PATIENT
  Age: 83 Year
  Sex: Male

DRUGS (2)
  1. ERLEADA [Suspect]
     Active Substance: APALUTAMIDE
     Indication: Hormone-dependent prostate cancer
     Dosage: 60 MG X 4
     Route: 048
     Dates: start: 20190925
  2. ERLEADA [Suspect]
     Active Substance: APALUTAMIDE
     Dosage: ONE TABLET OF ERLEADA A DAY INSTEAD OF THE PRESCRIBED DOSE OF 4? TABLETS A DAY
     Route: 048

REACTIONS (4)
  - Death [Fatal]
  - Colon cancer [Unknown]
  - Post procedural infection [Unknown]
  - Product administration error [Unknown]

NARRATIVE: CASE EVENT DATE: 20220228
